FAERS Safety Report 15464238 (Version 3)
Quarter: 2019Q1

REPORT INFORMATION
  Report Type: Spontaneous
  Country: FR (occurrence: FR)
  Receive Date: 20181004
  Receipt Date: 20190221
  Transmission Date: 20190417
  Serious: Yes (Life-Threatening, Hospitalization, Other)
  Sender: FDA-Public Use
  Company Number: FR-MYLANLABS-2018M1072041

PATIENT
  Age: 50 Year
  Sex: Male

DRUGS (13)
  1. METHYLPREDNISOLONE. [Suspect]
     Active Substance: METHYLPREDNISOLONE
     Indication: PRODUCT USED FOR UNKNOWN INDICATION
     Dosage: 32 MG, UNK, 32 MG/DAY FROM J49
  2. PROPRANOLOL [Suspect]
     Active Substance: PROPRANOLOL HYDROCHLORIDE
     Indication: ATRIAL FIBRILLATION
     Dosage: 240 MG, UNK, ,240 MG/DAY FROM DAY 33240 MG
  3. POTASSIUM [Suspect]
     Active Substance: POTASSIUM
     Dosage: 1350 MG, UNK, 1350 MG/DAY FOR 16 DAYS
  4. METHIMAZOLE. [Suspect]
     Active Substance: METHIMAZOLE
     Indication: PRODUCT USED FOR UNKNOWN INDICATION
     Dosage: 60 UNK, FOR 7 DAYS
  5. METHYLPREDNISOLONE. [Suspect]
     Active Substance: METHYLPREDNISOLONE
     Dosage: 96 MG, UNK, 96 MG/DAY FROM DAY 33 TILL J41
  6. PROPRANOLOL [Suspect]
     Active Substance: PROPRANOLOL HYDROCHLORIDE
     Dosage: 120 MG, UNK, ,120 MG/DAY FROM D0120 MG
  7. VERAPAMIL [Concomitant]
     Active Substance: VERAPAMIL HYDROCHLORIDE
     Indication: PRODUCT USED FOR UNKNOWN INDICATION
     Dosage: 120 MG, QD, FROM DAY 42 TILL DAY 49
     Route: 065
  8. METHYLPREDNISOLONE. [Suspect]
     Active Substance: METHYLPREDNISOLONE
     Dosage: 64 MG, UNK, 64 MG/ DAY FROM DAY 8
  9. METHYLPREDNISOLONE. [Suspect]
     Active Substance: METHYLPREDNISOLONE
     Dosage: 48 MG, UNK, 48 MG/DAY FROM DAY 0
  10. POTASSIUM [Suspect]
     Active Substance: POTASSIUM
     Indication: PRODUCT USED FOR UNKNOWN INDICATION
     Dosage: 900 MG, UNK, 900 MG/ DAY FOR 8 DAYS
  11. METHIMAZOLE. [Suspect]
     Active Substance: METHIMAZOLE
     Dosage: 60 MILLIGRAM, QD
  12. DIGOXIN. [Suspect]
     Active Substance: DIGOXIN
     Indication: ATRIAL FIBRILLATION
     Dosage: 0.25 MG, UNK,0.25 MG/DAY ON DAYS 0, 8, 33, 42, 49 AND 94
  13. METHIMAZOLE. [Suspect]
     Active Substance: METHIMAZOLE
     Dosage: 40 UNK, FROM J8 TILL J32

REACTIONS (5)
  - Condition aggravated [Recovering/Resolving]
  - Product use in unapproved indication [Unknown]
  - Product use issue [Unknown]
  - Cardiac failure [Recovering/Resolving]
  - Intentional product misuse [Unknown]
